FAERS Safety Report 4385316-X (Version None)
Quarter: 2004Q2

REPORT INFORMATION
  Report Type: 
  Country: None (occurrence: None)
  Receive Date: 20040624
  Receipt Date: 20040624
  Transmission Date: 20050107
  Serious: Yes (Hospitalization, Disabling)
  Sender: FDA-Public Use
  Company Number: None

PATIENT
  Age: 21 Month
  Sex: Male

DRUGS (1)
  1. OPTIRAY 350 [Suspect]
     Dosage: 11.2 CC/KG

REACTIONS (5)
  - CONVULSION [None]
  - MEDICATION ERROR [None]
  - MOVEMENT DISORDER [None]
  - NEUROTOXICITY [None]
  - PYREXIA [None]
